FAERS Safety Report 19156145 (Version 1)
Quarter: 2021Q2

REPORT INFORMATION
  Report Type: Spontaneous
  Country: BR (occurrence: BR)
  Receive Date: 20210419
  Receipt Date: 20210419
  Transmission Date: 20210717
  Serious: Yes (Hospitalization, Other)
  Sender: FDA-Public Use
  Company Number: BR-ANIPHARMA-2021-BR-000053

PATIENT
  Age: 37 Year
  Sex: Male

DRUGS (1)
  1. ALPRAZOLAM (NON?SPECIFIC) [Suspect]
     Active Substance: ALPRAZOLAM
     Indication: INSOMNIA
     Dosage: 0.5 MG EVERY NIGHT
     Route: 048

REACTIONS (1)
  - Angle closure glaucoma [Recovered/Resolved]
